FAERS Safety Report 9009308 (Version 2)
Quarter: 2013Q2

REPORT INFORMATION
  Report Type: Report from Study
  Country: US (occurrence: US)
  Receive Date: 20130111
  Receipt Date: 20130426
  Transmission Date: 20140414
  Serious: Yes (Hospitalization, Other)
  Sender: FDA-Public Use
  Company Number: US-BRISTOL-MYERS SQUIBB COMPANY-17267253

PATIENT
  Age: 60 Year
  Sex: Male
  Weight: 85 kg

DRUGS (2)
  1. IPILIMUMAB [Suspect]
     Indication: LYMPHOMA
     Route: 042
     Dates: start: 20121217
  2. RITUXIMAB [Suspect]
     Indication: LYMPHOMA
     Dosage: LAST DOSE:17DEC12
     Route: 042
     Dates: start: 20121217

REACTIONS (3)
  - Abdominal pain [Recovered/Resolved]
  - Constipation [Unknown]
  - Lymphocyte count decreased [Recovered/Resolved]
